FAERS Safety Report 10928547 (Version 2)
Quarter: 2015Q2

REPORT INFORMATION
  Report Type: Spontaneous
  Country: CA (occurrence: CA)
  Receive Date: 20150319
  Receipt Date: 20150401
  Transmission Date: 20150821
  Serious: Yes (Other)
  Sender: FDA-Public Use
  Company Number: CA-JNJFOC-20150305325

PATIENT
  Age: 29 Year
  Sex: Female
  Weight: 86.18 kg

DRUGS (1)
  1. LISTERINE ZERO [Suspect]
     Active Substance: MINT\PROPYLENE GLYCOL\SORBITOL
     Indication: DENTAL DISORDER PROPHYLAXIS
     Dosage: 1/2 A CAPFUL, 1 TIME
     Route: 048
     Dates: start: 20150302, end: 20150302

REACTIONS (4)
  - Choking [Recovered/Resolved]
  - Dyspnoea [Recovered/Resolved]
  - Cough [Recovered/Resolved]
  - Oropharyngeal pain [Recovered/Resolved]

NARRATIVE: CASE EVENT DATE: 20150302
